FAERS Safety Report 6155150-9 (Version None)
Quarter: 2009Q2

REPORT INFORMATION
  Report Type: 
  Country: None (occurrence: None)
  Receive Date: 20090415
  Receipt Date: 20090406
  Transmission Date: 20091009
  Serious: No
  Sender: FDA-Public Use
  Company Number: FR-JNJFOC-20090402285

PATIENT
  Sex: Female

DRUGS (2)
  1. DURAGESIC-100 [Suspect]
     Dosage: 25 MCG/HR+12.5 MCG/HR
     Route: 062
  2. DURAGESIC-100 [Suspect]
     Indication: ARTHRALGIA
     Dosage: 25 UG/HR 12.5 UG/HR
     Route: 062

REACTIONS (2)
  - DRUG PRESCRIBING ERROR [None]
  - WITHDRAWAL SYNDROME [None]
